FAERS Safety Report 9349392 (Version 5)
Quarter: 2013Q3

REPORT INFORMATION
  Report Type: Report from Study
  Country: JP (occurrence: JP)
  Receive Date: 20130614
  Receipt Date: 20130729
  Transmission Date: 20140515
  Serious: Yes (Life-Threatening, Hospitalization, Disabling)
  Sender: FDA-Public Use
  Company Number: JP-BAXTER-2013BAX021856

PATIENT
  Age: 62 Year
  Sex: Male

DRUGS (27)
  1. CYCLOPHOSPHAMIDE FOR INJECTION, USP [Suspect]
     Indication: DIFFUSE LARGE B-CELL LYMPHOMA
     Route: 042
     Dates: start: 20130528
  2. RITUXIMAB [Suspect]
     Indication: DIFFUSE LARGE B-CELL LYMPHOMA
     Dosage: 730 ML
     Route: 042
     Dates: start: 20130527
  3. RITUXIMAB [Suspect]
     Route: 042
  4. DOXORUBICIN [Suspect]
     Indication: DIFFUSE LARGE B-CELL LYMPHOMA
     Route: 042
     Dates: start: 20130528
  5. VINCRISTINE [Suspect]
     Indication: DIFFUSE LARGE B-CELL LYMPHOMA
     Route: 040
     Dates: start: 20130528
  6. PREDNISOLONE [Suspect]
     Indication: DIFFUSE LARGE B-CELL LYMPHOMA
     Route: 048
     Dates: start: 20130527
  7. PREDNISOLONE [Suspect]
     Route: 048
     Dates: start: 20130531
  8. TAMSULOSIN HYDROCHLORIDE [Concomitant]
     Indication: BENIGN PROSTATIC HYPERPLASIA
     Route: 065
  9. ALLOPURINOL [Concomitant]
     Indication: HYPERURICAEMIA
     Route: 065
  10. ACETAMINOPHEN [Concomitant]
     Indication: TUMOUR PAIN
     Route: 065
     Dates: start: 20130527
  11. ACETAMINOPHEN [Concomitant]
     Route: 065
     Dates: start: 20130529
  12. ACETAMINOPHEN [Concomitant]
     Route: 065
     Dates: start: 20130601
  13. ACETAMINOPHEN [Concomitant]
     Route: 065
     Dates: start: 20130524
  14. OMPRAZOLE [Concomitant]
     Indication: PRODUCT USED FOR UNKNOWN INDICATION
     Route: 065
     Dates: start: 20130524
  15. ZOLPIDEM TARTRATE [Concomitant]
     Indication: PRODUCT USED FOR UNKNOWN INDICATION
     Route: 065
     Dates: start: 20130522
  16. METOCLOPRAMIDE [Concomitant]
     Indication: PRODUCT USED FOR UNKNOWN INDICATION
     Route: 065
     Dates: start: 20130529
  17. APREPITANT [Concomitant]
     Indication: PRODUCT USED FOR UNKNOWN INDICATION
     Route: 065
     Dates: start: 20130528
  18. GRANISETRON HYDROCHLORIDE [Concomitant]
     Indication: PRODUCT USED FOR UNKNOWN INDICATION
     Route: 065
     Dates: start: 20130528
  19. CHLORPHENIRAMINE MALEATE [Concomitant]
     Indication: PRODUCT USED FOR UNKNOWN INDICATION
     Route: 065
     Dates: start: 20130527
  20. HYDROXYZINE HYDROCHLORIDE [Concomitant]
     Indication: PRODUCT USED FOR UNKNOWN INDICATION
     Route: 065
     Dates: start: 20130604, end: 20130604
  21. FLURBIPROFEN [Concomitant]
     Indication: INTESTINAL PERFORATION
     Route: 065
     Dates: start: 20130602, end: 20130602
  22. HEPARIN SODIUM [Concomitant]
     Indication: PRODUCT USED FOR UNKNOWN INDICATION
     Route: 065
     Dates: start: 20130525
  23. PREDNISOLONE [Concomitant]
     Indication: PRODUCT USED FOR UNKNOWN INDICATION
     Route: 065
     Dates: start: 20130524, end: 20130526
  24. CEFEPIME [Concomitant]
     Indication: PRODUCT USED FOR UNKNOWN INDICATION
     Route: 065
     Dates: start: 20130529, end: 20130601
  25. MIYA-BM [Concomitant]
     Indication: PRODUCT USED FOR UNKNOWN INDICATION
     Route: 065
     Dates: start: 20130610
  26. DIFLUPREDNATE [Concomitant]
     Indication: RASH
     Route: 065
     Dates: start: 20130616, end: 20130627
  27. FEXOFENADINE HYDROCHLORIDE [Concomitant]
     Indication: RASH
     Route: 065
     Dates: start: 20130616, end: 20130627

REACTIONS (1)
  - Intestinal perforation [Recovered/Resolved]
